FAERS Safety Report 11830808 (Version 2)
Quarter: 2016Q1

REPORT INFORMATION
  Report Type: Spontaneous
  Country: US (occurrence: US)
  Receive Date: 20151214
  Receipt Date: 20160121
  Transmission Date: 20160525
  Serious: Yes (Other)
  Sender: FDA-Public Use
  Company Number: US-BEH-2015056651

PATIENT
  Sex: Female
  Weight: 109 kg

DRUGS (30)
  1. DIPHENHYDRAMINE. [Concomitant]
     Active Substance: DIPHENHYDRAMINE
  2. OMEPRAZOLE. [Concomitant]
     Active Substance: OMEPRAZOLE
  3. ROCEPHIN [Concomitant]
     Active Substance: CEFTRIAXONE SODIUM
  4. CYCLOBENZAPRINE [Concomitant]
     Active Substance: CYCLOBENZAPRINE
  5. CO-ENZYME Q-10 [Concomitant]
  6. PROGESTERONE. [Concomitant]
     Active Substance: PROGESTERONE
  7. GUAIFENESIN. [Concomitant]
     Active Substance: GUAIFENESIN
  8. OIL OF OREGANO [Concomitant]
  9. METFORMIN HYDROCHLORIDE. [Concomitant]
     Active Substance: METFORMIN HYDROCHLORIDE
  10. XYZAL [Concomitant]
     Active Substance: LEVOCETIRIZINE DIHYDROCHLORIDE
  11. TYLENOL [Concomitant]
     Active Substance: ACETAMINOPHEN
     Indication: ARTHRITIS
  12. DIFLUCAN [Concomitant]
     Active Substance: FLUCONAZOLE
  13. HYDROXYCHLOROQUINE [Concomitant]
     Active Substance: HYDROXYCHLOROQUINE
  14. PROPANOLOL [Concomitant]
     Active Substance: PROPRANOLOL HYDROCHLORIDE
  15. ALEVE [Concomitant]
     Active Substance: NAPROXEN SODIUM
  16. TURMERIC [Concomitant]
     Active Substance: TURMERIC
  17. CEFTRIAXONE. [Concomitant]
     Active Substance: CEFTRIAXONE
  18. PREDNISONE. [Concomitant]
     Active Substance: PREDNISONE
  19. NYSTATIN. [Concomitant]
     Active Substance: NYSTATIN
  20. MUCINEX [Concomitant]
     Active Substance: GUAIFENESIN
  21. CYTOMEL [Concomitant]
     Active Substance: LIOTHYRONINE SODIUM
  22. ACETAMINOPHEN. [Concomitant]
     Active Substance: ACETAMINOPHEN
  23. EPIPEN [Concomitant]
     Active Substance: EPINEPHRINE
  24. LMX [Concomitant]
     Active Substance: LIDOCAINE
  25. IRON [Concomitant]
     Active Substance: IRON
  26. FERROUS GLUCONATE [Concomitant]
     Active Substance: FERROUS GLUCONATE
  27. DHEA [Concomitant]
     Active Substance: PRASTERONE
  28. HIZENTRA [Suspect]
     Active Substance: HUMAN IMMUNOGLOBULIN G
     Indication: IMMUNODEFICIENCY COMMON VARIABLE
     Dosage: 10 GM 50 ML VIALS
     Route: 058
     Dates: start: 20150812, end: 20151210
  29. ZANTAC [Concomitant]
     Active Substance: RANITIDINE HYDROCHLORIDE
  30. TESTOSTERONE. [Concomitant]
     Active Substance: TESTOSTERONE

REACTIONS (2)
  - Lower respiratory tract infection [Recovered/Resolved]
  - Sinusitis [Recovered/Resolved]
